FAERS Safety Report 4480423-5 (Version None)
Quarter: 2004Q4

REPORT INFORMATION
  Report Type: 
  Country: None (occurrence: None)
  Receive Date: 20041018
  Receipt Date: 20041008
  Transmission Date: 20050328
  Serious: No
  Sender: FDA-Public Use
  Company Number: 430074K04USA

PATIENT
  Age: 23 Year
  Sex: Female

DRUGS (6)
  1. NOVANTRONE [Suspect]
     Indication: MULTIPLE SCLEROSIS
     Dosage: 12 MG/M2, 1 IN 3 MONTHS, INTRAVENOUS (NOT OTHERWISE SPECIFIED)
     Route: 042
     Dates: start: 20030604, end: 20040316
  2. AVONEX [Suspect]
     Indication: MULTIPLE SCLEROSIS
     Dosage: 1 IN 1 WEEKS, INTRAMUSCULAR
     Route: 030
     Dates: start: 19980101, end: 20000101
  3. AVONEX [Suspect]
     Indication: MULTIPLE SCLEROSIS
     Dosage: 1 IN 1 WEEKS, INTRAMUSCULAR
     Route: 030
     Dates: start: 20040901
  4. IBUPROFEN [Concomitant]
  5. TYLENOL PM (TYLENOL PM) [Concomitant]
  6. BACLOFEN [Concomitant]

REACTIONS (4)
  - ARTHRALGIA [None]
  - CARDIOMYOPATHY [None]
  - EJECTION FRACTION DECREASED [None]
  - PAIN IN EXTREMITY [None]
